FAERS Safety Report 4359189-5 (Version None)
Quarter: 2004Q2

REPORT INFORMATION
  Report Type: 
  Country: None (occurrence: None)
  Receive Date: 20040512
  Receipt Date: 20040430
  Transmission Date: 20050107
  Serious: Yes (Hospitalization)
  Sender: FDA-Public Use
  Company Number: 2004211801TR

PATIENT
  Age: 75 Year
  Sex: Male

DRUGS (3)
  1. CABERGOLINE [Suspect]
     Indication: PARKINSON'S DISEASE
     Dosage: 1 MG, QD, ORAL
     Route: 048
  2. LEVODOPA BENSERAZIDE HYDROCHLORID (BENSERAZIDE HYDROCHLORIDE) [Concomitant]
  3. ENTACAPONE (ENTACAPONE) [Concomitant]

REACTIONS (3)
  - DELIRIUM [None]
  - INSOMNIA [None]
  - PSYCHOTIC DISORDER [None]
